FAERS Safety Report 22927229 (Version 3)
Quarter: 2024Q3

REPORT INFORMATION
  Report Type: Report from Study
  Country: US (occurrence: US)
  Receive Date: 20230911
  Receipt Date: 20240730
  Transmission Date: 20241017
  Serious: Yes (Other)
  Sender: ABBVIE
  Company Number: US-ABBVIE-5398914

PATIENT
  Age: 84 Year
  Sex: Female

DRUGS (1)
  1. HUMIRA [Suspect]
     Active Substance: ADALIMUMAB
     Indication: Rheumatoid arthritis
     Dosage: CITRATE FREE
     Route: 058
     Dates: start: 20020801

REACTIONS (6)
  - Macular degeneration [Not Recovered/Not Resolved]
  - Corneal oedema [Unknown]
  - Pain in extremity [Not Recovered/Not Resolved]
  - Intentional product misuse [Unknown]
  - COVID-19 [Recovered/Resolved]
  - Eye degenerative disorder [Not Recovered/Not Resolved]

NARRATIVE: CASE EVENT DATE: 20230101
